FAERS Safety Report 20994049 (Version 1)
Quarter: 2022Q2

REPORT INFORMATION
  Report Type: Report from Study
  Country: US (occurrence: US)
  Receive Date: 20220622
  Receipt Date: 20220622
  Transmission Date: 20220720
  Serious: Yes (Other)
  Sender: FDA-Public Use
  Company Number: US-MYLANLABS-2022M1046867

PATIENT
  Sex: Male

DRUGS (4)
  1. LEVETIRACETAM [Suspect]
     Active Substance: LEVETIRACETAM
     Indication: Myoclonic epilepsy
     Dosage: UNK
     Route: 065
  2. RUFINAMIDE [Suspect]
     Active Substance: RUFINAMIDE
     Indication: Myoclonic epilepsy
     Dosage: UNK
     Route: 065
  3. DIAZEPAM [Suspect]
     Active Substance: DIAZEPAM
     Indication: Myoclonic epilepsy
     Dosage: UNK
     Route: 065
  4. CANNABIDIOL [Suspect]
     Active Substance: CANNABIDIOL
     Indication: Myoclonic epilepsy
     Dosage: UNK
     Route: 065

REACTIONS (1)
  - Drug ineffective [Unknown]
